FAERS Safety Report 25276677 (Version 2)
Quarter: 2025Q2

REPORT INFORMATION
  Report Type: Spontaneous
  Country: IT (occurrence: IT)
  Receive Date: 20250507
  Receipt Date: 20250520
  Transmission Date: 20250716
  Serious: Yes (Other)
  Sender: TEVA
  Company Number: IT-TEVA-VS-3327693

PATIENT
  Sex: Male

DRUGS (2)
  1. DIAZEPAM [Suspect]
     Active Substance: DIAZEPAM
     Indication: Middle insomnia
     Route: 065
  2. NIAPRAZINE [Suspect]
     Active Substance: NIAPRAZINE
     Indication: Middle insomnia
     Route: 065

REACTIONS (4)
  - Paradoxical drug reaction [Unknown]
  - Agitation [Recovering/Resolving]
  - Irritability [Recovering/Resolving]
  - Drug ineffective [Unknown]
